FAERS Safety Report 8683482 (Version 2)
Quarter: 2013Q4

REPORT INFORMATION
  Report Type: Spontaneous
  Country: US (occurrence: US)
  Receive Date: 20120726
  Receipt Date: 20131101
  Transmission Date: 20140711
  Serious: No
  Sender: FDA-Public Use
  Company Number: US-009507513-1207USA007649

PATIENT
  Sex: Female

DRUGS (3)
  1. EMEND FOR INJECTION [Suspect]
     Indication: PROPHYLAXIS OF NAUSEA AND VOMITING
     Dosage: 150 MG, UNK
     Route: 042
  2. DOXORUBICIN [Concomitant]
  3. CYTOXAN [Concomitant]

REACTIONS (2)
  - Pruritus [Unknown]
  - Urticaria [Unknown]
